FAERS Safety Report 23276410 (Version 2)
Quarter: 2023Q4

REPORT INFORMATION
  Report Type: Spontaneous
  Country: JP (occurrence: JP)
  Receive Date: 20231208
  Receipt Date: 20231214
  Transmission Date: 20240110
  Serious: Yes (Life-Threatening)
  Sender: FDA-Public Use
  Company Number: JP-PFIZER INC-PV202300193964

PATIENT
  Age: 82 Year
  Sex: Female
  Weight: 42 kg

DRUGS (6)
  1. METHYLPREDNISOLONE SODIUM SUCCINATE [Suspect]
     Active Substance: METHYLPREDNISOLONE SODIUM SUCCINATE
     Dosage: 500 MG
  2. METHYLPREDNISOLONE SODIUM SUCCINATE [Suspect]
     Active Substance: METHYLPREDNISOLONE SODIUM SUCCINATE
     Dosage: 250 MG
  3. HEPARIN [Suspect]
     Active Substance: HEPARIN SODIUM
     Indication: Anticoagulant therapy
     Dosage: 10000 IU, DAILY
  4. DEXAMETHASONE [Concomitant]
     Active Substance: DEXAMETHASONE
     Dosage: 6.6 MG
     Route: 041
  5. REMDESIVIR [Concomitant]
     Active Substance: REMDESIVIR
     Dosage: 200 MG
  6. REMDESIVIR [Concomitant]
     Active Substance: REMDESIVIR
     Dosage: 100 MG

REACTIONS (5)
  - Haemorrhage [Recovering/Resolving]
  - Shock haemorrhagic [Recovering/Resolving]
  - Arterial injury [Recovering/Resolving]
  - Abdominal wall haematoma [Recovering/Resolving]
  - Peritoneal haematoma [Recovering/Resolving]
